FAERS Safety Report 20868647 (Version 1)
Quarter: 2022Q2

REPORT INFORMATION
  Report Type: Spontaneous
  Country: CA (occurrence: CA)
  Receive Date: 20220524
  Receipt Date: 20220524
  Transmission Date: 20220721
  Serious: Yes (Death)
  Sender: FDA-Public Use
  Company Number: CA-NAPPMUNDI-GBR-2022-0098156

PATIENT
  Age: 53 Year
  Sex: Male
  Weight: 70 kg

DRUGS (1)
  1. OXYCODONE HYDROCHLORIDE [Suspect]
     Active Substance: OXYCODONE HYDROCHLORIDE
     Indication: Pain
     Dosage: 5 MILLIGRAM
     Route: 048

REACTIONS (1)
  - Death [Fatal]
